FAERS Safety Report 13292710 (Version 1)
Quarter: 2017Q1

REPORT INFORMATION
  Report Type: Report from Study
  Country: AR (occurrence: AR)
  Receive Date: 20170303
  Receipt Date: 20170303
  Transmission Date: 20170428
  Serious: Yes (Hospitalization, Disabling, Other)
  Sender: FDA-Public Use
  Company Number: PHHY2017AR023386

PATIENT
  Age: 62 Year
  Sex: Female

DRUGS (2)
  1. TASIGNA [Suspect]
     Active Substance: NILOTINIB
     Indication: CHRONIC MYELOID LEUKAEMIA
     Dosage: 800 MG, QD
     Route: 048
     Dates: start: 201303
  2. ENALAPRIL [Concomitant]
     Active Substance: ENALAPRIL
     Indication: PRODUCT USED FOR UNKNOWN INDICATION
     Route: 065

REACTIONS (10)
  - Confusional state [Unknown]
  - Cerebrovascular accident [Unknown]
  - Facial paralysis [Unknown]
  - Disorientation [Unknown]
  - Syncope [Unknown]
  - Aphasia [Not Recovered/Not Resolved]
  - Ischaemic stroke [Unknown]
  - Loss of consciousness [Unknown]
  - Abnormal behaviour [Unknown]
  - Malaise [Unknown]

NARRATIVE: CASE EVENT DATE: 201701
